FAERS Safety Report 14893386 (Version 3)
Quarter: 2018Q3

REPORT INFORMATION
  Report Type: Report from Study
  Country: PL (occurrence: PL)
  Receive Date: 20180514
  Receipt Date: 20180730
  Transmission Date: 20181010
  Serious: Yes (Other)
  Sender: FDA-Public Use
  Company Number: PL-CHIESI USA INC.-PL-2018CHI000108

PATIENT
  Age: 0 Day
  Sex: Female
  Weight: 1.73 kg

DRUGS (6)
  1. CUROSURF [Suspect]
     Active Substance: PORACTANT ALFA
     Indication: NEONATAL RESPIRATORY DISTRESS SYNDROME
     Dosage: 360 MG, SINGLE
     Route: 039
     Dates: start: 20180417, end: 20180417
  2. DIFLUCAN [Concomitant]
     Active Substance: FLUCONAZOLE
     Indication: ANTIFUNGAL TREATMENT
     Dosage: 10.5 MG, QD
     Route: 042
     Dates: start: 20180417, end: 20180420
  3. AMPICILLINUM ANHYDRICUM [Concomitant]
     Indication: PRODUCT USED FOR UNKNOWN INDICATION
     Dosage: 350 MG, QD
     Route: 042
     Dates: start: 20180417, end: 20180421
  4. GENTAMYCINUM [Concomitant]
     Indication: PRODUCT USED FOR UNKNOWN INDICATION
     Dosage: 7.5 MG, QD
     Route: 042
     Dates: start: 20180417, end: 20180420
  5. PEYONA [Concomitant]
     Indication: INFANTILE APNOEA
     Dosage: 35 MG, QD
     Route: 042
     Dates: start: 20180417, end: 20180511
  6. PARACETAMOL [Concomitant]
     Active Substance: ACETAMINOPHEN
     Indication: PRODUCT USED FOR UNKNOWN INDICATION
     Dosage: UNK

REACTIONS (2)
  - Neonatal hypoxia [Recovered/Resolved]
  - Drug administration error [Recovered/Resolved]

NARRATIVE: CASE EVENT DATE: 20180417
